FAERS Safety Report 16813833 (Version 1)
Quarter: 2019Q3

REPORT INFORMATION
  Report Type: Spontaneous
  Country: US (occurrence: US)
  Receive Date: 20190917
  Receipt Date: 20190917
  Transmission Date: 20191005
  Serious: Yes (Death, Life-Threatening, Hospitalization, Other)
  Sender: FDA-Public Use
  Company Number: US-AUROBINDO-AUR-APL-2019-058943

PATIENT
  Age: 4 Year
  Sex: Male
  Weight: 15.3 kg

DRUGS (6)
  1. ROPIVACAINE HYDROCHLORIDE INJECTION [Interacting]
     Active Substance: ROPIVACAINE HYDROCHLORIDE
     Dosage: 6 MILLIGRAM, EVERY HOUR
     Route: 058
     Dates: start: 201809, end: 201809
  2. ROPIVACAINE HYDROCHLORIDE INJECTION [Suspect]
     Active Substance: ROPIVACAINE HYDROCHLORIDE
     Indication: PAIN
     Dosage: 6 MILLIGRAM, EVERY HOUR
     Route: 058
  3. FENTANYL. [Concomitant]
     Active Substance: FENTANYL
     Indication: PRODUCT USED FOR UNKNOWN INDICATION
     Dosage: 1 MICROGRAM/KILOGRAM, EVERY HOUR
     Route: 065
  4. PROPOFOL. [Interacting]
     Active Substance: PROPOFOL
     Indication: PRODUCT USED FOR UNKNOWN INDICATION
     Dosage: 120 MICROGRAM/KILOGRAM, MINUTE
     Route: 065
  5. PANTOPRAZOLE [Concomitant]
     Active Substance: PANTOPRAZOLE
     Indication: PRODUCT USED FOR UNKNOWN INDICATION
     Dosage: 0.5 MILLIGRAM/KILOGRAM, ONCE A DAY
     Route: 042
  6. CEFTRIAXONE. [Concomitant]
     Active Substance: CEFTRIAXONE
     Indication: PRODUCT USED FOR UNKNOWN INDICATION
     Dosage: 50 MILLIGRAM/KILOGRAM, ONCE A DAY
     Route: 065

REACTIONS (6)
  - Arrhythmia [Fatal]
  - Drug interaction [Fatal]
  - Ventricular fibrillation [Fatal]
  - Local anaesthetic systemic toxicity [Fatal]
  - Cardiac arrest [Recovered/Resolved]
  - Tachycardia [Recovered/Resolved]

NARRATIVE: CASE EVENT DATE: 201809
